FAERS Safety Report 10674472 (Version 2)
Quarter: 2015Q1

REPORT INFORMATION
  Report Type: Spontaneous
  Country: US (occurrence: US)
  Receive Date: 20141224
  Receipt Date: 20150210
  Transmission Date: 20150720
  Serious: No
  Sender: FDA-Public Use
  Company Number: US-PFIZER INC-2014350188

PATIENT
  Age: 89 Year
  Sex: Female
  Weight: 59.86 kg

DRUGS (2)
  1. DEPO-MEDROL [Suspect]
     Active Substance: METHYLPREDNISOLONE ACETATE
     Indication: MULTIPLE SCLEROSIS
     Dosage: 40 MG, UNK
  2. DEPO-MEDROL [Suspect]
     Active Substance: METHYLPREDNISOLONE ACETATE
     Dosage: UNK

REACTIONS (7)
  - Asthenia [Unknown]
  - Gait disturbance [Unknown]
  - Tooth disorder [Unknown]
  - Malaise [Unknown]
  - Myalgia [Unknown]
  - Drug ineffective [Not Recovered/Not Resolved]
  - Pain [Unknown]
